FAERS Safety Report 20597366 (Version 1)
Quarter: 2022Q1

REPORT INFORMATION
  Report Type: Spontaneous
  Country: US (occurrence: None)
  Receive Date: 20220315
  Receipt Date: 20220315
  Transmission Date: 20220423
  Serious: Yes (Death)
  Sender: FDA-Public Use
  Company Number: None

PATIENT
  Age: 81 Year
  Sex: Male

DRUGS (9)
  1. TEMOZOLOMIDE [Suspect]
     Active Substance: TEMOZOLOMIDE
     Indication: Brain neoplasm malignant
     Dosage: FREQUENCY : DAILY;?
     Route: 048
     Dates: start: 20220204, end: 20220228
  2. ATENOLOL [Concomitant]
     Active Substance: ATENOLOL
  3. CALCIUM\VITAMIN D [Concomitant]
     Active Substance: CALCIUM\VITAMIN D
  4. LEVETIRACETAM [Concomitant]
     Active Substance: LEVETIRACETAM
  5. MAGNESIUM [Concomitant]
     Active Substance: MAGNESIUM
  6. VITAMINS [Concomitant]
     Active Substance: VITAMINS
  7. PREDNISONE [Concomitant]
     Active Substance: PREDNISONE
  8. TAMSULOSIN [Concomitant]
     Active Substance: TAMSULOSIN
  9. TRELEGY ELIPTA 100-62.5 INHALER [Concomitant]

REACTIONS (2)
  - Brain neoplasm [None]
  - Malignant neoplasm progression [None]

NARRATIVE: CASE EVENT DATE: 20220228
